FAERS Safety Report 21532909 (Version 3)
Quarter: 2022Q4

REPORT INFORMATION
  Report Type: Report from Study
  Country: US (occurrence: US)
  Receive Date: 20221101
  Receipt Date: 20221206
  Transmission Date: 20230113
  Serious: Yes (Hospitalization, Other)
  Sender: FDA-Public Use
  Company Number: US-BRISTOL-MYERS SQUIBB COMPANY-2022-127974

PATIENT
  Age: 65 Year
  Sex: Male
  Weight: 99.79 kg

DRUGS (22)
  1. REVLIMID [Suspect]
     Active Substance: LENALIDOMIDE
     Indication: Metastases to bone
     Dosage: DAILY ON DAYS 1-14, DAILY ON DAYS 1-14?EXPIRY DATE (30-JUN-2024)
     Route: 048
     Dates: start: 20220915
  2. REVLIMID [Suspect]
     Active Substance: LENALIDOMIDE
     Indication: Anaemia of malignant disease
  3. REVLIMID [Suspect]
     Active Substance: LENALIDOMIDE
     Indication: Plasma cell myeloma
  4. ACETAMINOPHEN\HYDROCODONE [Suspect]
     Active Substance: ACETAMINOPHEN\HYDROCODONE
     Indication: Pain
     Dosage: HYDROCODONE-ACETAMINOPHEN 5 MG-325 MG
     Route: 065
  5. ELIQUIS [Concomitant]
     Active Substance: APIXABAN
  6. BACTRIM DS [Concomitant]
     Active Substance: SULFAMETHOXAZOLE\TRIMETHOPRIM
     Dosage: BACTRIM DS 800-160 MG TABLET
  7. MONTELUKAST SODIUM [Concomitant]
     Active Substance: MONTELUKAST SODIUM
  8. DEXAMETHASONE [Concomitant]
     Active Substance: DEXAMETHASONE
  9. ONDANSETRON HCL [Concomitant]
     Active Substance: ONDANSETRON HYDROCHLORIDE
  10. PROCHLORPERAZINE MALEATE [Concomitant]
     Active Substance: PROCHLORPERAZINE MALEATE
  11. ACYCLOVIR [Concomitant]
     Active Substance: ACYCLOVIR
  12. ASPIRIN [Concomitant]
     Active Substance: ASPIRIN
  13. OMEPRAZOLE [Concomitant]
     Active Substance: OMEPRAZOLE
  14. LISINOPRIL [Concomitant]
     Active Substance: LISINOPRIL
  15. CENTRUM SILVER [ASCORBIC ACID;CALCIUM;MINERALS NOS;RETINOL;TOCOPHERYL [Concomitant]
  16. CALCIUM\CHOLECALCIFEROL [Concomitant]
     Active Substance: CALCIUM\CHOLECALCIFEROL
     Dosage: 00MG-12.5 TABLET ER
  17. TUMS [Concomitant]
     Active Substance: CALCIUM CARBONATE
     Dosage: 200(500)MG TAB CHEW
  18. METAMUCIL [Concomitant]
     Active Substance: PLANTAGO SEED
  19. CETIRIZINE HYDROCHLORIDE [Concomitant]
     Active Substance: CETIRIZINE HYDROCHLORIDE
  20. VITAMIN D3 [Concomitant]
     Active Substance: CHOLECALCIFEROL
  21. VELCADE [Concomitant]
     Active Substance: BORTEZOMIB
     Indication: Product used for unknown indication
  22. DARZALEX [Concomitant]
     Active Substance: DARATUMUMAB
     Indication: Product used for unknown indication

REACTIONS (12)
  - Hip fracture [Unknown]
  - Fall [Unknown]
  - Tremor [Unknown]
  - Disturbance in attention [Unknown]
  - Off label use [Unknown]
  - Peripheral swelling [Recovering/Resolving]
  - Thrombosis [Unknown]
  - Constipation [Unknown]
  - Nausea [Unknown]
  - Memory impairment [Unknown]
  - Muscle twitching [Unknown]
  - Bone density abnormal [Unknown]

NARRATIVE: CASE EVENT DATE: 20220101
